FAERS Safety Report 19088532 (Version 1)
Quarter: 2021Q2

REPORT INFORMATION
  Report Type: Other
  Country: ES (occurrence: ES)
  Receive Date: 20210402
  Receipt Date: 20210402
  Transmission Date: 20210717
  Serious: Yes (Hospitalization)
  Sender: FDA-Public Use
  Company Number: ES-VALIDUS PHARMACEUTICALS LLC-ES-2021VAL000682

PATIENT
  Age: 95 Year
  Sex: Male

DRUGS (3)
  1. SITAGLIPTINA                       /05710001/ [Suspect]
     Active Substance: SITAGLIPTIN
     Indication: DIABETES MELLITUS
     Dosage: 50 MG, BID
     Dates: start: 20181129, end: 20181205
  2. FUROSEMIDE. [Suspect]
     Active Substance: FUROSEMIDE
     Indication: PRODUCT USED FOR UNKNOWN INDICATION
     Dosage: 80 MG, QD
     Route: 048
     Dates: start: 20181129, end: 20181205
  3. LORAZEPAM. [Suspect]
     Active Substance: LORAZEPAM
     Indication: PRODUCT USED FOR UNKNOWN INDICATION
     Dosage: 0.5 MG, QD
     Dates: start: 2016, end: 20181205

REACTIONS (1)
  - Encephalopathy [Recovered/Resolved]

NARRATIVE: CASE EVENT DATE: 20181204
